FAERS Safety Report 8512438-1 (Version None)
Quarter: 2012Q3

REPORT INFORMATION
  Report Type: 
  Country: None (occurrence: None)
  Receive Date: 20120716
  Receipt Date: 20120709
  Transmission Date: 20120928
  Serious: Yes (Other)
  Sender: FDA-Public Use
  Company Number: FR-ROCHE-1087937

PATIENT
  Sex: Female

DRUGS (1)
  1. XOLAIR [Suspect]
     Indication: ASTHMA
     Route: 065

REACTIONS (5)
  - WEIGHT DECREASED [None]
  - VOMITING [None]
  - DECREASED APPETITE [None]
  - GASTRITIS [None]
  - NAUSEA [None]
